FAERS Safety Report 10930909 (Version 1)
Quarter: 2015Q1

REPORT INFORMATION
  Report Type: Spontaneous
  Country: US (occurrence: US)
  Receive Date: 20150319
  Receipt Date: 20150319
  Transmission Date: 20150721
  Serious: No
  Sender: FDA-Public Use
  Company Number: US-BAUSCH-BL-2014-005003

PATIENT
  Sex: Female
  Weight: 68.03 kg

DRUGS (2)
  1. TRETINOIN. [Suspect]
     Active Substance: TRETINOIN
     Dosage: PEA SIZE AMOUNT AT BEDTIME, DAILY
     Route: 061
     Dates: start: 201405
  2. TRETINOIN. [Suspect]
     Active Substance: TRETINOIN
     Indication: SKIN WRINKLING
     Dosage: PEA SIZE AMOUNT AT BEDTIME, DAILY
     Route: 061
     Dates: start: 2012, end: 2012

REACTIONS (5)
  - Application site irritation [Recovered/Resolved]
  - Off label use [Not Recovered/Not Resolved]
  - Therapeutic response unexpected [Unknown]
  - Expired product administered [Not Recovered/Not Resolved]
  - Application site exfoliation [Recovered/Resolved]

NARRATIVE: CASE EVENT DATE: 2012
